FAERS Safety Report 5115396-5 (Version None)
Quarter: 2006Q3

REPORT INFORMATION
  Report Type: 
  Country: None (occurrence: None)
  Receive Date: 20060922
  Receipt Date: 20060911
  Transmission Date: 20061208
  Serious: Yes (Other)
  Sender: FDA-Public Use
  Company Number: 2006110052

PATIENT

DRUGS (1)
  1. NORVASC [Suspect]
     Dosage: SEE IMAGE, ORAL
     Route: 048

REACTIONS (1)
  - BLOOD POTASSIUM DECREASED [None]
